FAERS Safety Report 9192689 (Version 1)
Quarter: 2013Q1

REPORT INFORMATION
  Report Type: Spontaneous
  Country: US (occurrence: None)
  Receive Date: 20130325
  Receipt Date: 20130325
  Transmission Date: 20140127
  Serious: Yes (Hospitalization)
  Sender: FDA-Public Use
  Company Number: 1640256

PATIENT
  Age: 36 Year
  Sex: Male

DRUGS (4)
  1. HYDROMORPHONE HYDROCHLORIDE [Suspect]
     Indication: PAIN
     Route: 041
  2. MORPHINE SULFATE [Suspect]
     Dosage: 60 MG MILLIGRAM(S) (3 DAY)
     Route: 048
  3. (FLUID) [Concomitant]
  4. (RED BLOOD CELLS) [Concomitant]

REACTIONS (1)
  - Psychotic disorder [None]
